FAERS Safety Report 7987087-4 (Version None)
Quarter: 2011Q4

REPORT INFORMATION
  Report Type: 
  Country: None (occurrence: None)
  Receive Date: 20111216
  Receipt Date: 20110928
  Transmission Date: 20120403
  Serious: No
  Sender: FDA-Public Use
  Company Number: US-BRISTOL-MYERS SQUIBB COMPANY-16115842

PATIENT
  Age: 23 Year
  Sex: Female
  Weight: 50 kg

DRUGS (2)
  1. ABILIFY [Suspect]
     Dosage: 3 MONTHS AGO,AFTER 1 MONTH INCREASED THE DOSE TO 5MG,RECENTLY INCREASED THE DOSE TO 10MG
     Route: 048
  2. DEPO-PROVERA [Concomitant]
     Dosage: DEPO PROVERA SHOTS

REACTIONS (4)
  - SOMNOLENCE [None]
  - EXTRAPYRAMIDAL DISORDER [None]
  - ANXIETY [None]
  - AGITATION [None]
